FAERS Safety Report 8390312 (Version 8)
Quarter: 2013Q2

REPORT INFORMATION
  Report Type: Report from Study
  Country: CA (occurrence: CA)
  Receive Date: 20120203
  Receipt Date: 20130425
  Transmission Date: 20140414
  Serious: Yes (Other)
  Sender: FDA-Public Use
  Company Number: CA-ROCHE-1035639

PATIENT
  Age: 77 Year
  Sex: Male
  Weight: 70.8 kg

DRUGS (11)
  1. ACTEMRA [Suspect]
     Indication: RHEUMATOID ARTHRITIS
     Route: 042
     Dates: start: 20111209
  2. METHOTREXATE [Concomitant]
     Route: 058
  3. PREDNISONE [Concomitant]
     Route: 065
  4. RAMIPRIL [Concomitant]
  5. ZOCOR [Concomitant]
  6. WARFARIN [Concomitant]
  7. ASA [Concomitant]
     Route: 065
  8. FOLIC ACID [Concomitant]
  9. BISOPROLOL [Concomitant]
  10. KAYEXALATE [Concomitant]
     Route: 065
     Dates: start: 20120103
  11. LASIX [Concomitant]
     Route: 065

REACTIONS (13)
  - Atrial fibrillation [Recovered/Resolved]
  - Ankle operation [Recovered/Resolved]
  - Oedema [Not Recovered/Not Resolved]
  - Renal disorder [Unknown]
  - Arthropathy [Not Recovered/Not Resolved]
  - Oropharyngeal pain [Recovered/Resolved]
  - Aphthous stomatitis [Not Recovered/Not Resolved]
  - Blood potassium decreased [Unknown]
  - Swelling [Recovering/Resolving]
  - Pain [Not Recovered/Not Resolved]
  - Rheumatoid arthritis [Not Recovered/Not Resolved]
  - Asthenia [Not Recovered/Not Resolved]
  - Exercise tolerance decreased [Not Recovered/Not Resolved]
